FAERS Safety Report 7130437-1 (Version None)
Quarter: 2010Q4

REPORT INFORMATION
  Report Type: 
  Country: None (occurrence: None)
  Receive Date: 20101101
  Receipt Date: 20100719
  Transmission Date: 20110411
  Serious: No
  Sender: FDA-Public Use
  Company Number: 2010-09844

PATIENT
  Age: 51 Year
  Sex: Male
  Weight: 90.7 kg

DRUGS (5)
  1. RAPAFLO [Suspect]
     Indication: BENIGN PROSTATIC HYPERPLASIA
     Dosage: TOOK ONLY 2 CAPSULES, ORAL
     Route: 048
     Dates: start: 20100401, end: 20100401
  2. CLONAZEPAM [Concomitant]
  3. OXYBUTYNIN CHLORIDE [Concomitant]
  4. RISPERDAL [Concomitant]
  5. SERTRALINE HYDROCHLORIDE [Concomitant]

REACTIONS (2)
  - SUICIDAL IDEATION [None]
  - VIOLENCE-RELATED SYMPTOM [None]
